FAERS Safety Report 10395981 (Version 1)
Quarter: 2014Q3

REPORT INFORMATION
  Report Type: Spontaneous
  Country: US (occurrence: None)
  Receive Date: 20140815
  Receipt Date: 20140815
  Transmission Date: 20150326
  Serious: Yes (Disabling)
  Sender: FDA-Public Use
  Company Number: None

PATIENT
  Age: 72 Year
  Sex: Male
  Weight: 92.99 kg

DRUGS (1)
  1. CARVEDILOL. [Suspect]
     Active Substance: CARVEDILOL
     Indication: VASCULAR GRAFT
     Dosage: 2 PILLS  TWICE DAILY  TAKEN BY MOUTH
     Route: 048
     Dates: start: 20140228, end: 20140813

REACTIONS (2)
  - Musculoskeletal disorder [None]
  - Muscle spasms [None]

NARRATIVE: CASE EVENT DATE: 20140228
